FAERS Safety Report 17647252 (Version 1)
Quarter: 2020Q2

REPORT INFORMATION
  Report Type: Spontaneous
  Country: FR (occurrence: FR)
  Receive Date: 20200408
  Receipt Date: 20200408
  Transmission Date: 20200713
  Serious: Yes (Other)
  Sender: FDA-Public Use
  Company Number: FR-AUROBINDO-AUR-APL-2019-008027

PATIENT
  Age: 44 Year
  Sex: Male

DRUGS (2)
  1. TERBINAFINE TABLET [Suspect]
     Active Substance: TERBINAFINE
     Indication: DERMATOPHYTOSIS OF NAIL
     Dosage: 250 MILLIGRAM, ONCE A DAY
     Route: 048
     Dates: start: 20180820, end: 20181214
  2. PRITOR [Concomitant]
     Indication: HYPERTENSION
     Dosage: 80 MILLIGRAM, DAILY
     Route: 048

REACTIONS (2)
  - Hypertension [Recovered/Resolved]
  - Asthenia [Recovered/Resolved]

NARRATIVE: CASE EVENT DATE: 201809
